FAERS Safety Report 5013196-8 (Version None)
Quarter: 2006Q2

REPORT INFORMATION
  Report Type: 
  Country: None (occurrence: None)
  Receive Date: 20060530
  Receipt Date: 20060317
  Transmission Date: 20061013
  Serious: No
  Sender: FDA-Public Use
  Company Number: US-GLAXOSMITHKLINE-A0598030A

PATIENT
  Sex: Female

DRUGS (6)
  1. WELLBUTRIN XL [Suspect]
     Indication: DEPRESSION
     Dosage: 150MG PER DAY
     Route: 048
     Dates: start: 20060210
  2. ALLEGRA [Concomitant]
  3. PROPRANOLOL [Concomitant]
  4. SYNTHROID [Concomitant]
  5. PRAVACHOL [Concomitant]
  6. ACETAMINOPHEN [Concomitant]

REACTIONS (3)
  - HEADACHE [None]
  - OCULAR DISCOMFORT [None]
  - RHINORRHOEA [None]
